FAERS Safety Report 5909183-5 (Version None)
Quarter: 2008Q4

REPORT INFORMATION
  Report Type: 
  Country: None (occurrence: None)
  Receive Date: 20081006
  Receipt Date: 20080929
  Transmission Date: 20090506
  Serious: Yes (Hospitalization)
  Sender: FDA-Public Use
  Company Number: PHHY2008CL23108

PATIENT
  Age: 50 Year
  Sex: Female

DRUGS (10)
  1. EXFORGE [Suspect]
     Indication: HYPERTENSION
     Dosage: 1 TABLET (160 MG VALSARTAN/5 MG AMLODIPINE) PER DAY
  2. ASPIRIN [Concomitant]
  3. EUTIROX [Concomitant]
  4. LIPITOR [Concomitant]
  5. VALCOTE [Concomitant]
  6. METFORMIN HCL [Concomitant]
  7. IRON [Concomitant]
  8. VITAMINS [Concomitant]
  9. OMEPRAZOLE [Concomitant]
  10. DIET [Concomitant]

REACTIONS (4)
  - ANEURYSM [None]
  - DIVERTICULITIS [None]
  - GASTROINTESTINAL HAEMORRHAGE [None]
  - INTRA-ABDOMINAL HAEMANGIOMA [None]
